FAERS Safety Report 18107065 (Version 1)
Quarter: 2020Q3

REPORT INFORMATION
  Report Type: Report from Study
  Country: DE (occurrence: DE)
  Receive Date: 20200803
  Receipt Date: 20200803
  Transmission Date: 20201103
  Serious: Yes (Hospitalization)
  Sender: FDA-Public Use
  Company Number: DE-INCYTE CORPORATION-2018IN010888

PATIENT

DRUGS (15)
  1. INCB018424 [Suspect]
     Active Substance: RUXOLITINIB
     Dosage: 10 MG, QD (10 MG/DAY/TWICE)
     Route: 048
     Dates: start: 20200306, end: 20200416
  2. INCB018424 [Suspect]
     Active Substance: RUXOLITINIB
     Dosage: 20 MG, QD (20 MG/DAY/TWICE)
     Route: 048
     Dates: start: 20200515, end: 20200618
  3. INCB018424 [Suspect]
     Active Substance: RUXOLITINIB
     Dosage: 25 MG, QD (25 MG/DAY/TWICE)
     Route: 048
     Dates: start: 20181217, end: 20200123
  4. INCB018424 [Suspect]
     Active Substance: RUXOLITINIB
     Dosage: 20 MG, QD (20 MG/DAY/TWICE)
     Route: 048
     Dates: start: 20200124, end: 20200305
  5. SYREA [Concomitant]
     Active Substance: HYDROXYUREA
     Dosage: 500 MG, QD
     Route: 065
     Dates: start: 20160601, end: 20160613
  6. PALEXIA [Concomitant]
     Active Substance: TAPENTADOL HYDROCHLORIDE
     Indication: PRODUCT USED FOR UNKNOWN INDICATION
     Dosage: UNK
     Route: 065
     Dates: start: 20190417
  7. INCB018424 [Suspect]
     Active Substance: RUXOLITINIB
     Indication: MYELOFIBROSIS
     Dosage: 30 MG, QD (30 MG/DAY/TWICE)
     Route: 048
     Dates: start: 20180702, end: 20181216
  8. INCB018424 [Suspect]
     Active Substance: RUXOLITINIB
     Dosage: 15 MG, QD (15 MG/DAY/TWICE)
     Route: 048
     Dates: start: 20200417, end: 20200514
  9. ASPIRIN. [Concomitant]
     Active Substance: ASPIRIN
     Indication: PLATELET COUNT INCREASED
     Dosage: 100 MG, QD
     Route: 065
     Dates: start: 20110906
  10. CALCIUM [Concomitant]
     Active Substance: CALCIUM
     Indication: CALCIUM DEFICIENCY
     Dosage: 500 MG, PER DAY
     Route: 065
     Dates: start: 20190118
  11. PREGABALIN. [Concomitant]
     Active Substance: PREGABALIN
     Indication: PRODUCT USED FOR UNKNOWN INDICATION
     Dosage: UNK
     Route: 065
     Dates: start: 20190417
  12. SYREA [Concomitant]
     Active Substance: HYDROXYUREA
     Indication: MYELOFIBROSIS
     Dosage: 1000 MG, QD
     Route: 065
     Dates: start: 20100705, end: 20160302
  13. SYREA [Concomitant]
     Active Substance: HYDROXYUREA
     Dosage: 1500 MG, QD
     Route: 065
     Dates: start: 20160504, end: 20160531
  14. SYREA [Concomitant]
     Active Substance: HYDROXYUREA
     Dosage: 1000 MG, QD
     Route: 065
     Dates: start: 20160614
  15. INCB018424 [Suspect]
     Active Substance: RUXOLITINIB
     Dosage: 15 MG, QD (15 MG/DAY/TWICE)
     Route: 048
     Dates: start: 20200619

REACTIONS (10)
  - Urinary tract infection [Unknown]
  - Concomitant disease aggravated [Unknown]
  - Hyperkeratosis [Unknown]
  - Pain [Not Recovered/Not Resolved]
  - Vitamin B12 deficiency [Unknown]
  - Dysphonia [Recovered/Resolved]
  - Upper respiratory tract infection [Recovered/Resolved]
  - Vitamin D deficiency [Unknown]
  - Sepsis [Recovered/Resolved]
  - Herpes zoster [Recovered/Resolved]

NARRATIVE: CASE EVENT DATE: 20180702
